FAERS Safety Report 7264848-0 (Version None)
Quarter: 2011Q1

REPORT INFORMATION
  Report Type: 
  Country: None (occurrence: None)
  Receive Date: 20110131
  Receipt Date: 20110125
  Transmission Date: 20110831
  Serious: Yes (Death, Life-Threatening, Hospitalization)
  Sender: FDA-Public Use
  Company Number: PHHO2009AU07426

PATIENT
  Sex: Female
  Weight: 64 kg

DRUGS (3)
  1. AMN107 [Suspect]
     Dosage: NO TREATMENT
     Dates: start: 20100624, end: 20101001
  2. AMN107 [Suspect]
     Indication: CHRONIC MYELOID LEUKAEMIA
     Dosage: 800 MG
     Route: 048
     Dates: start: 20050816, end: 20090623
  3. AMN107 [Suspect]
     Dosage: UNK
     Route: 048
     Dates: start: 20091002

REACTIONS (12)
  - ACUTE MYOCARDIAL INFARCTION [None]
  - CHEST PAIN [None]
  - CORONARY REVASCULARISATION [None]
  - RENAL FAILURE [None]
  - CORONARY ARTERY BYPASS [None]
  - VENTRICULAR FAILURE [None]
  - CARDIAC FAILURE [None]
  - AORTIC STENOSIS [None]
  - ANGINA PECTORIS [None]
  - DYSPNOEA [None]
  - TROPONIN INCREASED [None]
  - AORTIC VALVE REPLACEMENT [None]
